FAERS Safety Report 17719908 (Version 2)
Quarter: 2020Q3

REPORT INFORMATION
  Report Type: Spontaneous
  Country: FR (occurrence: FR)
  Receive Date: 20200428
  Receipt Date: 20200709
  Transmission Date: 20201102
  Serious: Yes (Other)
  Sender: FDA-Public Use
  Company Number: FR-MYLANLABS-2020M1041852

PATIENT
  Age: 55 Year
  Sex: Male
  Weight: 90 kg

DRUGS (6)
  1. SUFENTANIL MYLAN [Suspect]
     Active Substance: SUFENTANIL
     Indication: SEDATION
     Dosage: 3026 MICROGRAM, QD
     Route: 042
     Dates: start: 20200310, end: 20200317
  2. BRICANYL [Concomitant]
     Active Substance: TERBUTALINE SULFATE
     Dosage: UNK
  3. PANTOPRAZOLE SODIUM. [Suspect]
     Active Substance: PANTOPRAZOLE SODIUM
     Indication: PROPHYLAXIS AGAINST GASTROINTESTINAL ULCER
     Dosage: 40 MILLIGRAM, QD
     Route: 042
     Dates: start: 20200306, end: 20200316
  4. PROPOFOL. [Concomitant]
     Active Substance: PROPOFOL
     Dosage: UNK
  5. MIDAZOLAM MYLAN [Suspect]
     Active Substance: MIDAZOLAM HYDROCHLORIDE
     Indication: SEDATION
     Dosage: 2567 MILLIGRAM, QD
     Route: 042
     Dates: start: 20200310, end: 20200316
  6. KALETRA [Suspect]
     Active Substance: LOPINAVIR\RITONAVIR
     Indication: CORONAVIRUS INFECTION
     Dosage: 800 MILLIGRAM, QD
     Route: 048
     Dates: start: 20200311, end: 20200316

REACTIONS (3)
  - Hypertriglyceridaemia [Recovered/Resolved]
  - Hyperlipasaemia [Not Recovered/Not Resolved]
  - Cholestasis [Recovered/Resolved]

NARRATIVE: CASE EVENT DATE: 20200315
